FAERS Safety Report 18255761 (Version 1)
Quarter: 2020Q3

REPORT INFORMATION
  Report Type: Other
  Country: US (occurrence: US)
  Receive Date: 20200910
  Receipt Date: 20200910
  Transmission Date: 20201103
  Serious: No
  Sender: FDA-Public Use
  Company Number: US-LEADIANT BIOSCIENCES INC-2019STPI000368

PATIENT

DRUGS (2)
  1. MATULANE [Suspect]
     Active Substance: PROCARBAZINE HYDROCHLORIDE
     Indication: BRAIN NEOPLASM MALIGNANT
     Dosage: 50 MILLIGRAM, 2 CAPS DAILY FOR 14 NIGHTS
     Dates: start: 20190412
  2. GLEOSTINE [Concomitant]
     Active Substance: LOMUSTINE

REACTIONS (2)
  - White blood cell count decreased [Not Recovered/Not Resolved]
  - Thrombosis [Not Recovered/Not Resolved]
